FAERS Safety Report 4363346-1 (Version None)
Quarter: 2004Q2

REPORT INFORMATION
  Report Type: 
  Country: None (occurrence: None)
  Receive Date: 20040524
  Receipt Date: 20040421
  Transmission Date: 20050107
  Serious: Yes (Other)
  Sender: FDA-Public Use
  Company Number: US-MERCK-0404USA01910

PATIENT
  Age: 80 Year
  Sex: Male
  Weight: 71 kg

DRUGS (4)
  1. MEVACOR [Concomitant]
     Route: 048
     Dates: start: 19870101
  2. ZOCOR [Suspect]
     Indication: HYPERLIPIDAEMIA
     Route: 048
     Dates: start: 20021217, end: 20040301
  3. ZOCOR [Suspect]
     Route: 048
     Dates: start: 19910101
  4. ZOCOR [Suspect]
     Route: 048
     Dates: start: 20000428

REACTIONS (15)
  - AMNESIA [None]
  - ANXIETY [None]
  - BALANCE DISORDER [None]
  - CEREBRAL ATROPHY [None]
  - CEREBRAL ISCHAEMIA [None]
  - CHRONIC OBSTRUCTIVE AIRWAYS DISEASE [None]
  - COGNITIVE DISORDER [None]
  - CORONARY ARTERY DISEASE [None]
  - DEPRESSION [None]
  - DIABETIC NEUROPATHY [None]
  - DIARRHOEA [None]
  - GLYCOSYLATED HAEMOGLOBIN DECREASED [None]
  - MEMORY IMPAIRMENT [None]
  - PERIPHERAL VASCULAR DISORDER [None]
  - URINE FLOW DECREASED [None]
